FAERS Safety Report 5781789-6 (Version None)
Quarter: 2008Q2

REPORT INFORMATION
  Report Type: 
  Country: None (occurrence: None)
  Receive Date: 20080623
  Receipt Date: 20070904
  Transmission Date: 20081010
  Serious: No
  Sender: FDA-Public Use
  Company Number: US-ASTRAZENECA-2007UW20857

PATIENT
  Age: 78 Year
  Sex: Female
  Weight: 83.9 kg

DRUGS (7)
  1. RHINOCORT [Suspect]
     Indication: NASAL DISORDER
     Dosage: ONE INHALATION IN EACH NOSTRIL
     Route: 045
     Dates: start: 20070828
  2. RHINOCORT [Suspect]
     Indication: POLYP
     Dosage: ONE INHALATION IN EACH NOSTRIL
     Route: 045
     Dates: start: 20070828
  3. VERAPAMIL [Concomitant]
  4. DIGOXIN [Concomitant]
  5. MAXZIDE [Concomitant]
  6. POTASSIUM CHLORIDE [Concomitant]
  7. XOPENEX [Concomitant]

REACTIONS (3)
  - ACCIDENTAL OVERDOSE [None]
  - DIZZINESS [None]
  - STOMACH DISCOMFORT [None]
